FAERS Safety Report 10236077 (Version 2)
Quarter: 2014Q2

REPORT INFORMATION
  Report Type: Spontaneous
  Country: AU (occurrence: AU)
  Receive Date: 20140613
  Receipt Date: 20140613
  Transmission Date: 20141212
  Serious: Yes (Other)
  Sender: FDA-Public Use
  Company Number: AU-PFIZER INC-2013314189

PATIENT
  Sex: Male

DRUGS (3)
  1. LIPITOR [Suspect]
     Dosage: UNK
     Dates: start: 2001
  2. AVAPRO [Concomitant]
  3. CO Q-10 [Concomitant]
     Dosage: UNK
     Dates: start: 2003

REACTIONS (3)
  - Vascular dementia [Unknown]
  - Aortic aneurysm [Unknown]
  - General physical health deterioration [Unknown]
